FAERS Safety Report 13053660 (Version 2)
Quarter: 2017Q1

REPORT INFORMATION
  Report Type: Spontaneous
  Country: CH (occurrence: CH)
  Receive Date: 20161222
  Receipt Date: 20170112
  Transmission Date: 20170428
  Serious: Yes (Hospitalization, Disabling, Other)
  Sender: FDA-Public Use
  Company Number: CH-ASTRAZENECA-2016SF31938

PATIENT
  Age: 70 Year
  Sex: Female
  Weight: 58.9 kg

DRUGS (17)
  1. FRESUBIN PROTEIN ENERGY [Concomitant]
     Route: 048
  2. KALIUM HAUSMANN [Concomitant]
     Route: 048
  3. LYRICA [Concomitant]
     Active Substance: PREGABALIN
     Route: 048
  4. SUPRADYN [Concomitant]
     Active Substance: ASCORBIC ACID\MINERALS\VITAMINS
     Route: 048
  5. VALVERDE VERSTOPFUNG [Concomitant]
     Active Substance: HERBALS
     Route: 048
  6. CALCIMAGON D3 [Concomitant]
     Active Substance: CALCIUM\CHOLECALCIFEROL
     Route: 048
  7. PRIMPERAN [Concomitant]
     Active Substance: METOCLOPRAMIDE HYDROCHLORIDE
     Dosage: 10.0MG AS REQUIRED
     Route: 048
  8. NEXIUM [Suspect]
     Active Substance: ESOMEPRAZOLE MAGNESIUM
     Route: 048
  9. DUROGESIC [Concomitant]
     Active Substance: FENTANYL
     Dosage: 25 MCG/H 1-0-0 EVERY THREE DAYS
     Route: 062
  10. MYDOCALM [Concomitant]
     Active Substance: TOLPERISONE
     Route: 048
  11. DUROGESIC [Concomitant]
     Active Substance: FENTANYL
     Dosage: 12 MCG/H 1-0-0 EVERY 3 DAYS;
     Route: 062
  12. LAXOBERON TROPFEN [Concomitant]
     Route: 048
  13. OXYNORM [Concomitant]
     Active Substance: OXYCODONE HYDROCHLORIDE
     Route: 048
  14. DAFALGAN [Concomitant]
     Active Substance: ACETAMINOPHEN
     Dosage: 500.0MG AS REQUIRED
     Route: 048
  15. NOVALGIN [Concomitant]
     Active Substance: METAMIZOLE SODIUM
     Route: 048
  16. DUPHALAC [Concomitant]
     Active Substance: LACTULOSE
     Dosage: 1.0DF AS REQUIRED
     Route: 048
  17. PROLIA [Suspect]
     Active Substance: DENOSUMAB
     Indication: OSTEOPOROSIS
     Dosage: 60MG EVERY SIX MONTHS
     Route: 058
     Dates: start: 201108, end: 201602

REACTIONS (6)
  - Osteoporosis [Unknown]
  - Rebound effect [Not Recovered/Not Resolved]
  - Haemangioma of liver [Unknown]
  - Thoracic vertebral fracture [Not Recovered/Not Resolved]
  - Lumbar vertebral fracture [Not Recovered/Not Resolved]
  - Weight decreased [Unknown]

NARRATIVE: CASE EVENT DATE: 2016
